FAERS Safety Report 20971655 (Version 2)
Quarter: 2022Q2

REPORT INFORMATION
  Report Type: Spontaneous
  Country: US (occurrence: US)
  Receive Date: 20220616
  Receipt Date: 20220627
  Transmission Date: 20220721
  Serious: No
  Sender: FDA-Public Use
  Company Number: US-SA-SAC20220609001602

PATIENT
  Age: 6 Year
  Sex: Male

DRUGS (1)
  1. DUPIXENT [Suspect]
     Active Substance: DUPILUMAB
     Indication: Dermatitis atopic
     Dosage: 2 ML, QM
     Route: 058

REACTIONS (4)
  - Erythema [Not Recovered/Not Resolved]
  - Eczema [Unknown]
  - Rash [Unknown]
  - Inappropriate schedule of product administration [Unknown]
